FAERS Safety Report 9640202 (Version 1)
Quarter: 2013Q4

REPORT INFORMATION
  Report Type: Spontaneous
  Country: US (occurrence: US)
  Receive Date: 20131023
  Receipt Date: 20131023
  Transmission Date: 20140711
  Serious: No
  Sender: FDA-Public Use
  Company Number: US-PFIZER INC-2013300608

PATIENT
  Sex: 0

DRUGS (6)
  1. FLAGYL [Suspect]
     Dosage: UNK
  2. TERRAMYCIN [Suspect]
     Dosage: UNK
  3. CEPHALEXIN [Suspect]
     Dosage: UNK
  4. CIPROFLOXACIN [Suspect]
     Dosage: UNK
  5. CODEINE [Suspect]
     Dosage: UNK
  6. ROCEPHIN [Suspect]
     Dosage: UNK

REACTIONS (1)
  - Drug hypersensitivity [Unknown]
